FAERS Safety Report 22317877 (Version 3)
Quarter: 2023Q2

REPORT INFORMATION
  Report Type: Spontaneous
  Country: US (occurrence: None)
  Receive Date: 20230515
  Receipt Date: 20230605
  Transmission Date: 20230722
  Serious: Yes (Other)
  Sender: FDA-Public Use
  Company Number: US-ROCHE-3348547

PATIENT
  Sex: Female
  Weight: 89.438 kg

DRUGS (12)
  1. RITUXAN [Suspect]
     Active Substance: RITUXIMAB
     Indication: Diffuse large B-cell lymphoma
     Dosage: TAKEN AS R-CHOP
     Route: 041
     Dates: start: 202101, end: 202105
  2. RITUXAN [Suspect]
     Active Substance: RITUXIMAB
     Route: 041
     Dates: start: 20210506, end: 20210729
  3. CYCLOPHOSPHAMIDE [Concomitant]
     Active Substance: CYCLOPHOSPHAMIDE
     Indication: Diffuse large B-cell lymphoma
     Dosage: TAKEN AS R-CHOP
     Dates: start: 202101, end: 202105
  4. DOXORUBICIN HYDROCHLORIDE [Concomitant]
     Active Substance: DOXORUBICIN HYDROCHLORIDE
     Indication: Diffuse large B-cell lymphoma
     Dosage: TAKEN AS R-CHOP
     Dates: start: 202101, end: 202105
  5. VINCRISTINE SULFATE [Concomitant]
     Active Substance: VINCRISTINE SULFATE
     Indication: Diffuse large B-cell lymphoma
     Dosage: TAKEN AS R-CHOP
     Dates: start: 202101, end: 202105
  6. VINCRISTINE SULFATE [Concomitant]
     Active Substance: VINCRISTINE SULFATE
     Route: 042
     Dates: start: 20210506, end: 20210729
  7. PREDNISONE [Concomitant]
     Active Substance: PREDNISONE
     Indication: Diffuse large B-cell lymphoma
     Dosage: TAKEN AS R-CHOP
     Dates: start: 202101, end: 202105
  8. PREDNISONE [Concomitant]
     Active Substance: PREDNISONE
     Route: 042
     Dates: start: 20210506, end: 20210729
  9. CARBOPLATIN [Concomitant]
     Active Substance: CARBOPLATIN
     Indication: Ovarian cancer
     Dosage: TAKEN WITH TAXOL
     Route: 042
     Dates: start: 2017
  10. TAXOL [Concomitant]
     Active Substance: PACLITAXEL
     Indication: Ovarian cancer
     Dosage: TAKEN WITH CARBOPLATIN
  11. EPIRUBICIN [Concomitant]
     Active Substance: EPIRUBICIN
     Indication: Diffuse large B-cell lymphoma
     Route: 042
     Dates: start: 20210506, end: 20210729
  12. PACLITAXEL [Concomitant]
     Active Substance: PACLITAXEL
     Route: 042
     Dates: start: 2017

REACTIONS (3)
  - Diffuse large B-cell lymphoma recurrent [Unknown]
  - Cerebrovascular accident [Recovered/Resolved]
  - Aphasia [Not Recovered/Not Resolved]

NARRATIVE: CASE EVENT DATE: 20210901
